FAERS Safety Report 26078964 (Version 1)
Quarter: 2025Q4

REPORT INFORMATION
  Report Type: Spontaneous
  Country: US (occurrence: US)
  Receive Date: 20251123
  Receipt Date: 20251123
  Transmission Date: 20260117
  Serious: No
  Sender: DR REDDYS
  Company Number: US-DRL-USA-USA/2025/10/016474

PATIENT

DRUGS (1)
  1. METOPROLOL SUCCINATE [Suspect]
     Active Substance: METOPROLOL SUCCINATE
     Indication: Hypertension
     Dosage: ER TABLETS (EXTENDED-RELEASE)
     Route: 065

REACTIONS (3)
  - Dyspnoea [Unknown]
  - Faeces soft [Unknown]
  - Product odour abnormal [Unknown]
